FAERS Safety Report 20730328 (Version 1)
Quarter: 2022Q2

REPORT INFORMATION
  Report Type: Spontaneous
  Country: US (occurrence: None)
  Receive Date: 20220419
  Receipt Date: 20220419
  Transmission Date: 20220721
  Serious: Yes (Other)
  Sender: FDA-Public Use
  Company Number: None

PATIENT
  Age: 61 Year
  Sex: Male
  Weight: 51.75 kg

DRUGS (5)
  1. TRAZODONE [Suspect]
     Active Substance: TRAZODONE HYDROCHLORIDE
     Indication: Insomnia
     Dosage: OTHER QUANTITY : 1 TABLET(S);?FREQUENCY : AT BEDTIME;?
     Route: 048
  2. METHADONE [Concomitant]
     Active Substance: METHADONE HYDROCHLORIDE
  3. metamucil as needed [Concomitant]
  4. tums as needed [Concomitant]
  5. docusate as needed [Concomitant]

REACTIONS (7)
  - Tinnitus [None]
  - Dizziness [None]
  - Palpitations [None]
  - Confusional state [None]
  - Agitation [None]
  - Tremor [None]
  - Eye pain [None]

NARRATIVE: CASE EVENT DATE: 20220307
